FAERS Safety Report 8445174-0 (Version None)
Quarter: 2012Q2

REPORT INFORMATION
  Report Type: 
  Country: None (occurrence: None)
  Receive Date: 20120618
  Receipt Date: 20120612
  Transmission Date: 20120825
  Serious: Yes (Hospitalization)
  Sender: FDA-Public Use
  Company Number: US-ROCHE-1078116

PATIENT
  Sex: Male
  Weight: 71.732 kg

DRUGS (1)
  1. XELODA [Suspect]
     Indication: COLORECTAL CANCER METASTATIC
     Route: 048
     Dates: start: 20120507

REACTIONS (5)
  - DECREASED APPETITE [None]
  - APHAGIA [None]
  - VOMITING [None]
  - FATIGUE [None]
  - DEHYDRATION [None]
